FAERS Safety Report 8010430-7 (Version None)
Quarter: 2011Q4

REPORT INFORMATION
  Report Type: 
  Country: None (occurrence: None)
  Receive Date: 20111222
  Receipt Date: 20111212
  Transmission Date: 20120403
  Serious: Yes (Other)
  Sender: FDA-Public Use
  Company Number: AUR-APL-2011-01452

PATIENT
  Age: 67 Year
  Sex: Female
  Weight: 75.2971 kg

DRUGS (9)
  1. VITAMIN B COMPLEX (B-KOMPLEX) [Concomitant]
  2. SIMVASTATIN [Suspect]
     Indication: BLOOD CHOLESTEROL INCREASED
     Dosage: (40 MG,NIGHTLY),ORAL
     Route: 048
     Dates: start: 20100901, end: 20110315
  3. MULTIVITAMINS (VIGRAN) [Concomitant]
  4. FLAX OIL (LINUM USITATISSIMUM SEED OIL) [Concomitant]
  5. OMEGA (OMEPRAZOLE) [Concomitant]
  6. VITAMIN E [Concomitant]
  7. CITRACAL (CALCIUM CITRATE) [Concomitant]
  8. ATENOLOL [Concomitant]
  9. FLEXAMINE (GLUCOSAMINE) (GLUCOSAMINE) [Concomitant]

REACTIONS (5)
  - PAIN [None]
  - MYALGIA [None]
  - MALAISE [None]
  - PRODUCT SUBSTITUTION ISSUE [None]
  - INSOMNIA [None]
